FAERS Safety Report 16197077 (Version 1)
Quarter: 2019Q2

REPORT INFORMATION
  Report Type: Spontaneous
  Country: US (occurrence: US)
  Receive Date: 20190415
  Receipt Date: 20190415
  Transmission Date: 20190711
  Serious: No
  Sender: FDA-Public Use
  Company Number: US-PFIZER INC-2019154189

PATIENT
  Age: 88 Year
  Sex: Female

DRUGS (5)
  1. HYDROCODONE [Suspect]
     Active Substance: HYDROCODONE
     Dosage: UNK
  2. OXYCODONE [Suspect]
     Active Substance: OXYCODONE
     Dosage: UNK
  3. TRAMADOL. [Suspect]
     Active Substance: TRAMADOL
     Dosage: UNK
  4. MORPHINE SULFATE. [Suspect]
     Active Substance: MORPHINE SULFATE
     Dosage: UNK
  5. ALPRAZOLAM. [Suspect]
     Active Substance: ALPRAZOLAM
     Dosage: UNK

REACTIONS (1)
  - Drug hypersensitivity [Unknown]
